FAERS Safety Report 5311346-7 (Version None)
Quarter: 2007Q2

REPORT INFORMATION
  Report Type: 
  Country: None (occurrence: None)
  Receive Date: 20070430
  Receipt Date: 20070423
  Transmission Date: 20071010
  Serious: Yes (Other)
  Sender: FDA-Public Use
  Company Number: PHBS2007ES06986

PATIENT
  Age: 35 Year
  Sex: Female

DRUGS (1)
  1. ELIDEL [Suspect]
     Indication: DERMATITIS ATOPIC
     Dosage: 1% 30 G CREAM, BID
     Route: 061
     Dates: start: 20061231, end: 20061231

REACTIONS (1)
  - DERMATITIS CONTACT [None]
